FAERS Safety Report 7548946-X (Version None)
Quarter: 2011Q2

REPORT INFORMATION
  Report Type: 
  Country: None (occurrence: None)
  Receive Date: 20110615
  Receipt Date: 20110610
  Transmission Date: 20111010
  Serious: Yes (Other)
  Sender: FDA-Public Use
  Company Number: US-PFIZER INC-2011127684

PATIENT
  Sex: Female
  Weight: 65.76 kg

DRUGS (9)
  1. CHANTIX [Suspect]
     Dosage: 0.5 MG, 2X/DAY
     Route: 048
     Dates: start: 20110501, end: 20110501
  2. CHANTIX [Suspect]
     Indication: SMOKING CESSATION THERAPY
     Dosage: 0.5 MG, 1X/DAY
     Route: 048
     Dates: start: 20110523, end: 20110501
  3. AZTREONAM [Concomitant]
     Dosage: UNK
  4. CHANTIX [Suspect]
     Dosage: 0.5 MG, 1X/DAY
     Route: 048
     Dates: start: 20110501, end: 20110604
  5. LEVOTHYROXINE [Concomitant]
     Dosage: UNK
  6. FLURBIPROFEN [Concomitant]
     Indication: ARTHRITIS
  7. FLURBIPROFEN [Concomitant]
     Indication: ARTHRALGIA
     Dosage: UNK
  8. NEXIUM [Concomitant]
     Dosage: UNK
  9. PROPRANOLOL [Concomitant]
     Dosage: UNK

REACTIONS (3)
  - DEPRESSION [None]
  - HEAD TITUBATION [None]
  - TREMOR [None]
